FAERS Safety Report 11749364 (Version 6)
Quarter: 2017Q1

REPORT INFORMATION
  Report Type: Spontaneous
  Country: US (occurrence: US)
  Receive Date: 20151118
  Receipt Date: 20170321
  Transmission Date: 20170428
  Serious: Yes (Death, Congenital Anomaly, Other)
  Sender: FDA-Public Use
  Company Number: PHEH2015US023905

PATIENT
  Sex: Female

DRUGS (4)
  1. ZOFRAN ODT [Suspect]
     Active Substance: ONDANSETRON HYDROCHLORIDE
     Indication: FOETAL EXPOSURE DURING PREGNANCY
     Dosage: MOTHER^S DOSE: 04 MG, UNK
     Route: 064
  2. ZOFRAN [Suspect]
     Active Substance: ONDANSETRON HYDROCHLORIDE
     Indication: FOETAL EXPOSURE DURING PREGNANCY
     Dosage: MOTHER DOSE: 04 MG, Q8H
     Route: 064
  3. ONDANSETRON. [Suspect]
     Active Substance: ONDANSETRON
     Indication: FOETAL EXPOSURE DURING PREGNANCY
     Dosage: MOTHER^S DOSE: 4 MG, Q8H ( 2 TIMES)
     Route: 064
  4. ONDANSETRON HYDROCHLORIDE. [Suspect]
     Active Substance: ONDANSETRON HYDROCHLORIDE
     Indication: FOETAL EXPOSURE DURING PREGNANCY
     Dosage: MOTHER^S DOSE: 4 MG, QID
     Route: 064

REACTIONS (13)
  - Atrial septal defect [Unknown]
  - Injury [Fatal]
  - Foetal exposure during pregnancy [Unknown]
  - Right ventricular hypertrophy [Unknown]
  - Emotional distress [Unknown]
  - Ebstein^s anomaly [Unknown]
  - Cardiomegaly [Unknown]
  - Congenital pulmonary valve atresia [Unknown]
  - Pulmonary hypoplasia [Unknown]
  - Heart disease congenital [Unknown]
  - Right ventricular dysfunction [Unknown]
  - Pain [Unknown]
  - Anxiety [Unknown]
